FAERS Safety Report 5642515-4 (Version None)
Quarter: 2008Q1

REPORT INFORMATION
  Report Type: 
  Country: None (occurrence: None)
  Receive Date: 20080227
  Receipt Date: 20080227
  Transmission Date: 20080703
  Serious: Yes (Disabling, Other)
  Sender: FDA-Public Use
  Company Number: None

PATIENT
  Age: 60 Year
  Sex: Female

DRUGS (11)
  1. FOSAMAX [Suspect]
     Indication: OSTEOPOROSIS
     Dosage: 10MG/DAILY   70 MG/WK  APPROX 1996-06/2006
     Dates: end: 20060601
  2. FOSAMAX [Suspect]
     Indication: OSTEOPOROSIS
     Dosage: 10MG/DAILY   70 MG/WK  APPROX 1996-06/2006
     Dates: start: 19960101
  3. CLINDAMYCIN HCL [Concomitant]
  4. ATENOLOL [Concomitant]
  5. SYNTHROID [Concomitant]
  6. LASIX [Concomitant]
  7. HYDROCHLOROTHIAZIDE [Concomitant]
  8. TOPAMAX [Concomitant]
  9. ETODOLAC [Concomitant]
  10. SUDAFED 12 HOUR [Concomitant]
  11. GUIANEFEN [Concomitant]

REACTIONS (4)
  - FISTULA [None]
  - OSTEOMYELITIS [None]
  - OSTEONECROSIS [None]
  - SOFT TISSUE DISORDER [None]
